FAERS Safety Report 7581439-2 (Version None)
Quarter: 2011Q2

REPORT INFORMATION
  Report Type: 
  Country: None (occurrence: None)
  Receive Date: 20110629
  Receipt Date: 20110616
  Transmission Date: 20111010
  Serious: Yes (Other)
  Sender: FDA-Public Use
  Company Number: PHHY2011JP54824

PATIENT
  Sex: Male

DRUGS (25)
  1. RITODRINE HYDROCHLORIDE [Concomitant]
     Dosage: 4 MG, UNK
     Route: 048
  2. LEXOTAN [Concomitant]
     Dosage: 6 MG, UNK
     Dates: start: 20101106, end: 20101130
  3. CLOZAPINE [Suspect]
     Dosage: 75 MG, DAILY
     Route: 048
     Dates: start: 20101213
  4. LULLAN [Concomitant]
     Dosage: 24 MG, UNK
     Route: 048
     Dates: start: 20101115, end: 20101201
  5. RISUMIC [Concomitant]
     Dosage: 20 MG, UNK
     Route: 048
     Dates: end: 20101211
  6. VEGETAMIN A [Concomitant]
     Dosage: 1 DF, UNK
     Route: 048
  7. BROTIZOLAM [Concomitant]
     Dosage: 0.25 MG, UNK
     Route: 048
  8. HALCION [Concomitant]
     Dosage: 0.25 MG, UNK
     Route: 048
  9. SENNOSIDE [Concomitant]
     Dosage: 36 MG, UNK
     Route: 048
  10. NORMATENS ^POLFA-RZESZOW^ [Concomitant]
     Dosage: 10 MG, UNK
     Route: 048
     Dates: start: 20101207, end: 20101208
  11. CLOZAPINE [Suspect]
     Dosage: 100 MG, DAILY
     Route: 048
     Dates: start: 20101205
  12. CLOZAPINE [Suspect]
     Dosage: 25 MG, DAILY
     Route: 048
     Dates: start: 20101215
  13. TENORMIN [Concomitant]
     Dosage: 25 MG, UNK
     Route: 048
     Dates: start: 20101209, end: 20101212
  14. CLOZAPINE [Suspect]
     Dosage: 75 MG, DAILY
     Route: 048
     Dates: start: 20101208
  15. CLOZAPINE [Suspect]
     Dosage: 50 MG, DAILY
     Route: 048
     Dates: start: 20101214
  16. UNISIA COMBINATION [Concomitant]
     Dosage: UNK
     Dates: start: 20101125, end: 20101209
  17. NAUZELIN [Concomitant]
     Dosage: 30 MG, UNK
     Dates: start: 20101208
  18. CLOZAPINE [Suspect]
     Route: 048
     Dates: end: 20101216
  19. EMILACE [Concomitant]
     Dosage: 10 MG, UNK
     Route: 048
     Dates: start: 20101005, end: 20101201
  20. LORAZEPAM [Concomitant]
     Dosage: 3 MG, UNK
     Route: 048
  21. LAXOBERON [Concomitant]
     Dosage: 5 MG, UNK
     Route: 048
  22. CLOZAPINE [Suspect]
     Indication: SCHIZOPHRENIA
     Route: 048
     Dates: start: 20101126
  23. CLOZAPINE [Suspect]
     Dosage: 100 MG, DAILY
     Route: 048
     Dates: start: 20101209
  24. SEROQUEL [Concomitant]
     Dosage: 350 MG, UNK
     Route: 048
  25. ARTANE [Concomitant]
     Dosage: 6 MG, UNK
     Route: 048
     Dates: end: 20101221

REACTIONS (9)
  - LIVER DISORDER [None]
  - BLOOD ALKALINE PHOSPHATASE INCREASED [None]
  - TACHYCARDIA [None]
  - PYREXIA [None]
  - C-REACTIVE PROTEIN INCREASED [None]
  - HEART RATE INCREASED [None]
  - GAMMA-GLUTAMYLTRANSFERASE INCREASED [None]
  - PALPITATIONS [None]
  - HAEMOGLOBIN DECREASED [None]
